FAERS Safety Report 11401914 (Version 1)
Quarter: 2015Q3

REPORT INFORMATION
  Report Type: Spontaneous
  Country: US (occurrence: US)
  Receive Date: 20150821
  Receipt Date: 20150821
  Transmission Date: 20151125
  Serious: No
  Sender: FDA-Public Use
  Company Number: US-ROCHE-1374145

PATIENT
  Sex: Female

DRUGS (4)
  1. RIBASPHERE RIBAPAK [Suspect]
     Active Substance: RIBAVIRIN
     Indication: CHRONIC HEPATITIS C
     Dosage: KADMON PHARMACEUTICALS BRAND, IN DIVIDED DOSES 600/400
     Route: 048
     Dates: start: 20140307
  2. PEGASYS [Suspect]
     Active Substance: PEGINTERFERON ALFA-2A
     Indication: CHRONIC HEPATITIS C
     Route: 058
     Dates: start: 20140307
  3. SOVALDI [Suspect]
     Active Substance: SOFOSBUVIR
     Indication: CHRONIC HEPATITIS C
     Route: 048
     Dates: start: 20140307
  4. JANUVIA [Concomitant]
     Active Substance: SITAGLIPTIN PHOSPHATE
     Route: 065

REACTIONS (4)
  - Blood glucose increased [Unknown]
  - Stress [Unknown]
  - Inappropriate schedule of drug administration [Unknown]
  - Onychoclasis [Unknown]
